FAERS Safety Report 24388420 (Version 1)
Quarter: 2024Q4

REPORT INFORMATION
  Report Type: Spontaneous
  Country: CN (occurrence: CN)
  Receive Date: 20241002
  Receipt Date: 20241002
  Transmission Date: 20250115
  Serious: Yes (Other)
  Sender: BAXTER
  Company Number: None

PATIENT
  Age: 79 Year
  Sex: Male
  Weight: 80 kg

DRUGS (6)
  1. MANNITOL [Suspect]
     Active Substance: MANNITOL
     Indication: Rotator cuff syndrome
     Dosage: 100 ML, TWICE DAILY (DOSAGE FORM: INJECTION)
     Route: 041
     Dates: start: 20240821, end: 20240829
  2. MANNITOL [Suspect]
     Active Substance: MANNITOL
     Indication: Swelling
     Dosage: 100 ML, ONCE DAILY (DOSAGE FORM: INJECTION)
     Route: 041
     Dates: start: 20240830, end: 20240908
  3. DEXTROSE [Suspect]
     Active Substance: DEXTROSE MONOHYDRATE
     Indication: Fluid replacement
     Dosage: 5 % GLUCOSE, UNSPECIFIED DOSE AND FREQUENCY
     Route: 065
     Dates: start: 20240830, end: 20240905
  4. INSULIN HUMAN [Suspect]
     Active Substance: INSULIN HUMAN
     Indication: Diabetes mellitus
     Dosage: 5 UNITS OF HUMAN INSULIN DILUTED IN 500 ML OF SODIUM CHLORIDE QD [WAN BAO LIN R] 1 IN ONE DAY
     Route: 041
     Dates: start: 20240830, end: 20240905
  5. INSULIN HUMAN [Suspect]
     Active Substance: INSULIN HUMAN
     Indication: Fluid replacement
  6. SODIUM CHLORIDE [Suspect]
     Active Substance: SODIUM CHLORIDE
     Indication: Medication dilution
     Dosage: 500 ML OF SODIUM CHLORIDE USED TO DILUTE 5 UNITS OF HUMAN INSULIN QD [MINSHENG]
     Route: 041
     Dates: start: 20240830, end: 20240905

REACTIONS (1)
  - Hypokalaemia [Recovering/Resolving]

NARRATIVE: CASE EVENT DATE: 20240830
